FAERS Safety Report 14022777 (Version 3)
Quarter: 2017Q4

REPORT INFORMATION
  Report Type: Spontaneous
  Country: US (occurrence: US)
  Receive Date: 20170929
  Receipt Date: 20171103
  Transmission Date: 20180321
  Serious: Yes (Disabling, Other)
  Sender: FDA-Public Use
  Company Number: US-009507513-1709USA014889

PATIENT
  Age: 91 Year
  Sex: Female
  Weight: 106.58 kg

DRUGS (5)
  1. INSULIN [Concomitant]
     Active Substance: INSULIN NOS
     Dosage: UNK
  2. NOVOLIN [Concomitant]
     Active Substance: INSULIN HUMAN
     Indication: TYPE 2 DIABETES MELLITUS
     Dosage: 150 DF, (UNIT: MTS) TOTAL DAILY DOSE: 150MCG(STRENGTH: 70/30)
     Route: 058
     Dates: start: 20170920
  3. FENTANYL. [Concomitant]
     Active Substance: FENTANYL
     Indication: PAIN
     Dosage: 25 MICROGRAM, QD
     Route: 061
     Dates: start: 20161012
  4. JANUVIA [Suspect]
     Active Substance: SITAGLIPTIN PHOSPHATE
     Indication: TYPE 2 DIABETES MELLITUS
     Dosage: UNK, DAILY
     Route: 048
     Dates: start: 20170920, end: 20170927
  5. NAMENDA [Concomitant]
     Active Substance: MEMANTINE HYDROCHLORIDE
     Indication: DEMENTIA
     Dosage: 28 MG, TOTAL DAILY DOSE: 28MG
     Route: 048
     Dates: start: 20140313

REACTIONS (2)
  - Arthralgia [Recovering/Resolving]
  - Gait inability [Recovering/Resolving]

NARRATIVE: CASE EVENT DATE: 20170924
